FAERS Safety Report 17089473 (Version 2)
Quarter: 2022Q2

REPORT INFORMATION
  Report Type: Spontaneous
  Country: US (occurrence: US)
  Receive Date: 20191128
  Receipt Date: 20220425
  Transmission Date: 20220721
  Serious: Yes (Hospitalization, Other)
  Sender: FDA-Public Use
  Company Number: US-TEVA-2019-US-1142821

PATIENT
  Age: 58 Year
  Sex: Male

DRUGS (10)
  1. METHOTREXATE [Suspect]
     Active Substance: METHOTREXATE
     Indication: Metastases to meninges
     Dosage: MATRIX REGIMEN, HIGH-DOSE; ON DAY 2 EVERY 21 DAYS; SCHEDULED FOR FOUR CYCLES
     Route: 065
  2. LEUCOVORIN [Suspect]
     Active Substance: LEUCOVORIN
     Indication: Metastases to meninges
     Dosage: MATRIX REGIMEN; EVERY 21 DAYS; SCHEDULED FOR FOUR CYCLES
     Route: 065
  3. CYTARABINE [Suspect]
     Active Substance: CYTARABINE
     Indication: Metastases to meninges
     Dosage: MATRIX REGIMEN, ON DAY 3 AND 4 EVERY 21 DAYS; SCHEDULED FOR FOUR CYCLES
     Route: 065
  4. RITUXIMAB [Suspect]
     Active Substance: RITUXIMAB
     Indication: Metastases to meninges
     Dosage: MATRIX REGIMEN, ON DAY 1 EVERY 21 DAYS; SCHEDULED FOR FOUR CYCLES
     Route: 065
  5. THIOTEPA [Suspect]
     Active Substance: THIOTEPA
     Indication: Metastases to meninges
     Dosage: MATRIX REGIMEN, ON DAY 5 EVERY 21 DAYS; SCHEDULED FOR FOUR CYCLES
     Route: 065
  6. ACYCLOVIR [Concomitant]
     Active Substance: ACYCLOVIR
     Indication: Prophylaxis
     Route: 065
  7. SULFAMETHOXAZOLE\TRIMETHOPRIM [Concomitant]
     Active Substance: SULFAMETHOXAZOLE\TRIMETHOPRIM
     Indication: Prophylaxis
     Route: 065
  8. DEXAMETHASONE [Concomitant]
     Active Substance: DEXAMETHASONE
     Route: 065
  9. LISINOPRIL [Concomitant]
     Active Substance: LISINOPRIL
     Route: 065
  10. PREDNISONE [Concomitant]
     Active Substance: PREDNISONE
     Indication: Rheumatoid arthritis
     Dosage: EVERY OTHER DAY
     Route: 065

REACTIONS (6)
  - Pancytopenia [Recovering/Resolving]
  - Streptococcal bacteraemia [Recovered/Resolved]
  - Candida infection [Recovered/Resolved]
  - Fungaemia [Recovered/Resolved]
  - Sepsis [Recovered/Resolved]
  - Gastric ulcer haemorrhage [Unknown]
